FAERS Safety Report 6131931-2 (Version None)
Quarter: 2009Q1

REPORT INFORMATION
  Report Type: 
  Country: None (occurrence: None)
  Receive Date: 20090325
  Receipt Date: 20090313
  Transmission Date: 20090719
  Serious: Yes (Other)
  Sender: FDA-Public Use
  Company Number: US-PFIZER INC-2009165301

PATIENT
  Sex: Male
  Weight: 85.3 kg

DRUGS (2)
  1. XALATAN [Suspect]
     Indication: INTRAOCULAR PRESSURE TEST ABNORMAL
     Dates: start: 20080101
  2. XALATAN [Suspect]
     Indication: OCULAR HYPERTENSION

REACTIONS (3)
  - CUTIS LAXA [None]
  - EYE DISORDER [None]
  - OCULAR HYPERAEMIA [None]
